FAERS Safety Report 17737170 (Version 1)
Quarter: 2020Q2

REPORT INFORMATION
  Report Type: Spontaneous
  Country: FR (occurrence: FR)
  Receive Date: 20200502
  Receipt Date: 20200502
  Transmission Date: 20200714
  Serious: Yes (Hospitalization)
  Sender: FDA-Public Use
  Company Number: FR-TEVA-2020-FR-1229439

PATIENT
  Age: 58 Year
  Sex: Male
  Weight: 82 kg

DRUGS (19)
  1. DUPHALAC [Concomitant]
     Active Substance: LACTULOSE
     Dosage: 3X / D DEPENDING ON THE TRANSIT
     Route: 048
  2. SERESTA [Concomitant]
     Active Substance: OXAZEPAM
     Dosage: 10 MILLIGRAM DAILY; IF ANXIETY
     Route: 048
  3. IMOVANE [Concomitant]
     Active Substance: ZOPICLONE
     Dosage: 7.5MG, IF INSOMNIA
     Route: 048
  4. PROPRANOLOL [Concomitant]
     Active Substance: PROPRANOLOL HYDROCHLORIDE
     Dosage: 160 MG
     Route: 048
  5. PANTOPRAZOLE [Concomitant]
     Active Substance: PANTOPRAZOLE
     Dosage: 40 MG
     Route: 048
  6. PERINDOPRIL [Concomitant]
     Active Substance: PERINDOPRIL
     Dosage: 4 MG
     Route: 048
  7. SKENAN [Concomitant]
     Active Substance: MORPHINE SULFATE
     Dosage: 40 MG
     Route: 048
  8. ZOPHREN 8 MG, LYOPHILISAT ORAL [Concomitant]
     Active Substance: ONDANSETRON HYDROCHLORIDE
     Dosage: 8MG, IF NAUSEA DESPITE PRIMPERAN
     Route: 048
  9. DIOSMECTITE [Concomitant]
     Active Substance: MONTMORILLONITE
     Dosage: 3X / D IF DIARRHEA
     Route: 048
  10. ELVORINE [Suspect]
     Active Substance: LEUCOVORIN CALCIUM
     Indication: RECTAL ADENOCARCINOMA
     Route: 042
     Dates: start: 20191029, end: 20200318
  11. CETUXIMAB ((MAMMIFERE/SOURIS/SP2/O)) [Suspect]
     Active Substance: CETUXIMAB
     Indication: RECTAL ADENOCARCINOMA
     Route: 042
     Dates: start: 20191029, end: 20200318
  12. PARACETAMOL [Concomitant]
     Active Substance: ACETAMINOPHEN
     Dosage: 4 GRAM DAILY; IF PAIN
     Route: 048
  13. PRIMPERAN [Concomitant]
     Active Substance: METOCLOPRAMIDE HYDROCHLORIDE
     Dosage: IF NAUSEA
     Route: 048
  14. EMLA [Concomitant]
     Active Substance: LIDOCAINE\PRILOCAINE
     Dosage: 2 DOSAGE FORMS
     Route: 062
  15. ACTISKENAN [Concomitant]
     Active Substance: MORPHINE SULFATE
     Dosage: 5MG UP TO 6X / D IF PAIN
     Route: 048
  16. BINOCRIT 30 000 UI/0,75 ML, SOLUTION INJECTABLE EN SERINGUE PR?REMPLIE [Concomitant]
     Active Substance: ERYTHROPOIETIN
     Dosage: 1 DOSAGE FORMS
     Route: 058
  17. IRINOTECAN [Suspect]
     Active Substance: IRINOTECAN
     Indication: RECTAL ADENOCARCINOMA
     Route: 042
     Dates: start: 20191029, end: 20200318
  18. FLUOROURACIL. [Suspect]
     Active Substance: FLUOROURACIL
     Indication: RECTAL ADENOCARCINOMA
     Route: 042
     Dates: start: 20191029, end: 20200318
  19. KARDEGIC [Concomitant]
     Active Substance: ASPIRIN DL-LYSINE
     Dosage: 75 MG
     Route: 048

REACTIONS (1)
  - Osteitis [Not Recovered/Not Resolved]

NARRATIVE: CASE EVENT DATE: 20200323
